FAERS Safety Report 6106536-X (Version None)
Quarter: 2009Q1

REPORT INFORMATION
  Report Type: 
  Country: None (occurrence: None)
  Receive Date: 20090304
  Receipt Date: 20090220
  Transmission Date: 20090719
  Serious: Yes (Other)
  Sender: FDA-Public Use
  Company Number: LMI-2009-00021

PATIENT
  Age: 56 Year
  Sex: Male
  Weight: 99.7913 kg

DRUGS (11)
  1. CARDIOLITE [Suspect]
     Indication: ELECTROCARDIOGRAM ABNORMAL
     Dosage: (10.18 MILLICURIES), INTRAVENOUS : (29.1 MILLICURIES), INTRAVENOUS
     Route: 042
     Dates: start: 20090217, end: 20090217
  2. CARDIOLITE [Suspect]
     Indication: SCAN MYOCARDIAL PERFUSION
     Dosage: (10.18 MILLICURIES), INTRAVENOUS : (29.1 MILLICURIES), INTRAVENOUS
     Route: 042
     Dates: start: 20090217, end: 20090217
  3. CARDIOLITE [Suspect]
     Indication: ELECTROCARDIOGRAM ABNORMAL
     Dosage: (10.18 MILLICURIES), INTRAVENOUS : (29.1 MILLICURIES), INTRAVENOUS
     Route: 042
     Dates: start: 20090217, end: 20090217
  4. CARDIOLITE [Suspect]
     Indication: SCAN MYOCARDIAL PERFUSION
     Dosage: (10.18 MILLICURIES), INTRAVENOUS : (29.1 MILLICURIES), INTRAVENOUS
     Route: 042
     Dates: start: 20090217, end: 20090217
  5. BYETTA [Concomitant]
  6. COREG [Concomitant]
  7. MOBIC [Concomitant]
  8. ZOCOR [Concomitant]
  9. NEXIUM [Concomitant]
  10. NOVOLOG [Concomitant]
  11. ASPIRIN [Concomitant]

REACTIONS (3)
  - PRURITUS [None]
  - SWOLLEN TONGUE [None]
  - URTICARIA [None]
